FAERS Safety Report 18065094 (Version 2)
Quarter: 2020Q4

REPORT INFORMATION
  Report Type: Spontaneous
  Country: JP (occurrence: JP)
  Receive Date: 20200724
  Receipt Date: 20201207
  Transmission Date: 20210113
  Serious: Yes (Hospitalization)
  Sender: FDA-Public Use
  Company Number: JP-LEADINGPHARMA-JP-2020LEALIT00115

PATIENT
  Age: 70 Year
  Sex: Male

DRUGS (4)
  1. FUROSEMIDE TABLETS USP [Suspect]
     Active Substance: FUROSEMIDE
     Indication: NEPHROTIC SYNDROME
     Route: 065
  2. APIXABAN [Concomitant]
     Active Substance: APIXABAN
     Indication: VENOUS THROMBOSIS
     Route: 065
  3. PREDNISOLONE. [Interacting]
     Active Substance: PREDNISOLONE
     Route: 048
  4. PEMBROLIZUMAB. [Concomitant]
     Active Substance: PEMBROLIZUMAB
     Indication: LUNG ADENOCARCINOMA STAGE IV
     Route: 065

REACTIONS (5)
  - Pulmonary congestion [Unknown]
  - Oedema [Recovered/Resolved]
  - Oliguria [Recovered/Resolved]
  - Dyspnoea [Unknown]
  - Condition aggravated [Unknown]
